FAERS Safety Report 4457982-1 (Version None)
Quarter: 2004Q3

REPORT INFORMATION
  Report Type: 
  Country: None (occurrence: None)
  Receive Date: 20040922
  Receipt Date: 20040906
  Transmission Date: 20050211
  Serious: Yes (Other)
  Sender: FDA-Public Use
  Company Number: FR_040904696

PATIENT
  Age: 40 Year
  Sex: Female

DRUGS (2)
  1. GEMZAR [Suspect]
     Indication: BREAST CANCER METASTATIC
     Dosage: 1250 MG/M2/2 OTHER
     Dates: start: 20040626
  2. PACLITAXEL [Suspect]
     Indication: BREAST CANCER METASTATIC
     Dosage: 80 MG/M2/3 OTHER
     Dates: start: 20040626

REACTIONS (2)
  - ONYCHOLYSIS [None]
  - PHOTOSENSITIVITY REACTION [None]
